FAERS Safety Report 19124897 (Version 1)
Quarter: 2021Q2

REPORT INFORMATION
  Report Type: Spontaneous
  Country: FR (occurrence: FR)
  Receive Date: 20210413
  Receipt Date: 20210413
  Transmission Date: 20210717
  Serious: Yes (Death, Other)
  Sender: FDA-Public Use
  Company Number: FR-BRISTOL-MYERS SQUIBB COMPANY-BMS-2021-033310

PATIENT
  Age: 90 Year
  Sex: Female
  Weight: 67.5 kg

DRUGS (1)
  1. COUMADINE [Suspect]
     Active Substance: WARFARIN SODIUM
     Indication: ATRIAL FIBRILLATION
     Dosage: 4 MILLIGRAM, 1 DAY
     Route: 048
     Dates: end: 20210320

REACTIONS (3)
  - Overdose [Fatal]
  - International normalised ratio increased [Fatal]
  - Haemorrhage [Fatal]

NARRATIVE: CASE EVENT DATE: 20210320
